FAERS Safety Report 5504832-8 (Version None)
Quarter: 2007Q4

REPORT INFORMATION
  Report Type: 
  Country: None (occurrence: None)
  Receive Date: 20071031
  Receipt Date: 20071010
  Transmission Date: 20080405
  Serious: Yes (Hospitalization)
  Sender: FDA-Public Use
  Company Number: 2007US000553

PATIENT
  Age: 60 Year
  Sex: Male

DRUGS (17)
  1. PROGRAF(TACROLIMUS CAPSULE) PROGRAF (TACROLIMUS) CAPSULE [Suspect]
     Indication: PROPHYLAXIS AGAINST TRANSPLANT REJECTION
     Dosage: 3 MG, UID/QD, ORAL
     Route: 048
     Dates: start: 20060531, end: 20061030
  2. PROGRAF(TACROLIMUS CAPSULE) PROGRAF (TACROLIMUS) CAPSULE [Suspect]
     Indication: PROPHYLAXIS AGAINST TRANSPLANT REJECTION
     Dosage: 3 MG, UID/QD, ORAL
     Route: 048
     Dates: start: 20061030
  3. MYCOPHENOLATE MOFETIL [Suspect]
     Indication: PROPHYLAXIS AGAINST TRANSPLANT REJECTION
     Dosage: 2000 MG, UNKNOWN/D, ORAL
     Route: 048
     Dates: start: 20050801, end: 20061030
  4. MYCOPHENOLATE MOFETIL [Suspect]
     Indication: PROPHYLAXIS AGAINST TRANSPLANT REJECTION
     Dosage: 2000 MG, UNKNOWN/D, ORAL
     Route: 048
     Dates: start: 20061030
  5. TRAVATAN [Concomitant]
  6. HUMALOG [Concomitant]
  7. PEPCID [Concomitant]
  8. BACTRIM [Concomitant]
  9. MULTIVITAMIN (VITAMIN NOS) [Concomitant]
  10. DOCUSATE SODIUM (DOCUSATE SODIUM) [Concomitant]
  11. ATENOLOL [Concomitant]
  12. VITAMIN D NOS (VITAMIN D NOS) [Concomitant]
  13. FLOMAX [Concomitant]
  14. QUININE SULFATE [Concomitant]
  15. TUMS [Concomitant]
  16. METOPROLOL TARTRATE [Concomitant]
  17. INSULIN [Concomitant]

REACTIONS (18)
  - ASTHENIA [None]
  - COUGH [None]
  - CREPITATIONS [None]
  - DIABETES MELLITUS INADEQUATE CONTROL [None]
  - DIABETIC KETOACIDOSIS [None]
  - DISORIENTATION [None]
  - ELECTROLYTE IMBALANCE [None]
  - FOREIGN BODY TRAUMA [None]
  - GASTROOESOPHAGEAL REFLUX DISEASE [None]
  - HYPOVOLAEMIA [None]
  - MYOCARDIAL INFARCTION [None]
  - OBSTRUCTIVE UROPATHY [None]
  - OESOPHAGEAL CANDIDIASIS [None]
  - OESOPHAGEAL PAIN [None]
  - ORTHOSTATIC HYPOTENSION [None]
  - PAIN [None]
  - URINARY RETENTION [None]
  - VENTRICULAR HYPERTROPHY [None]
